FAERS Safety Report 21833966 (Version 1)
Quarter: 2023Q1

REPORT INFORMATION
  Report Type: Report from Study
  Country: US (occurrence: US)
  Receive Date: 20230108
  Receipt Date: 20230108
  Transmission Date: 20230418
  Serious: No
  Sender: FDA-Public Use
  Company Number: US-ABBVIE-4205304

PATIENT
  Sex: Male

DRUGS (1)
  1. HUMIRA [Suspect]
     Active Substance: ADALIMUMAB
     Indication: Ankylosing spondylitis
     Route: 058
     Dates: start: 20210617

REACTIONS (4)
  - Mobility decreased [Not Recovered/Not Resolved]
  - Unevaluable event [Recovered/Resolved]
  - Hypersensitivity [Recovered/Resolved]
  - Therapy interrupted [Recovered/Resolved]
